FAERS Safety Report 15221318 (Version 1)
Quarter: 2018Q3

REPORT INFORMATION
  Report Type: Spontaneous
  Country: US (occurrence: US)
  Receive Date: 20180731
  Receipt Date: 20180731
  Transmission Date: 20181010
  Serious: Yes (Other)
  Sender: FDA-Public Use
  Company Number: US-PFIZER INC-2018302010

PATIENT
  Age: 71 Year
  Sex: Female
  Weight: 81.65 kg

DRUGS (1)
  1. GABAPENTIN. [Suspect]
     Active Substance: GABAPENTIN
     Indication: DIABETIC NEPHROPATHY
     Dosage: 300 MG, 3X/DAY
     Dates: start: 2013

REACTIONS (11)
  - Liver injury [Unknown]
  - Constipation [Unknown]
  - Oropharyngeal pain [Unknown]
  - Impaired quality of life [Unknown]
  - Product use in unapproved indication [Unknown]
  - Pharyngeal oedema [Unknown]
  - Flatulence [Unknown]
  - Diarrhoea [Unknown]
  - Gingival pain [Unknown]
  - Swollen tongue [Unknown]
  - Oral pain [Unknown]

NARRATIVE: CASE EVENT DATE: 2013
